FAERS Safety Report 25456653 (Version 1)
Quarter: 2025Q2

REPORT INFORMATION
  Report Type: Spontaneous
  Country: GB (occurrence: GB)
  Receive Date: 20250619
  Receipt Date: 20250619
  Transmission Date: 20250717
  Serious: Yes (Disabling, Other)
  Sender: TEIKOKU
  Company Number: None

PATIENT
  Age: 70 Year
  Sex: Male
  Weight: 78 kg

DRUGS (3)
  1. LIDOCAINE [Suspect]
     Active Substance: LIDOCAINE
  2. ATORVASTATIN;PERINDOPRIL [Concomitant]
  3. ATORVASTATIN;PERINDOPRIL [Concomitant]

REACTIONS (27)
  - Dyspnoea [Recovered/Resolved]
  - Swelling face [Unknown]
  - Diplopia [Unknown]
  - Heart rate irregular [Unknown]
  - Confusional state [Unknown]
  - Deafness [Unknown]
  - Granuloma [Unknown]
  - Dysphagia [Unknown]
  - Chest discomfort [Unknown]
  - Heart rate increased [Unknown]
  - Medication error [Unknown]
  - Chest pain [Unknown]
  - Muscle twitching [Unknown]
  - Asthenia [Unknown]
  - Feeling cold [Unknown]
  - Dizziness [Unknown]
  - Pyrexia [Unknown]
  - Headache [Unknown]
  - Tinnitus [Unknown]
  - Irregular breathing [Unknown]
  - Insomnia [Unknown]
  - Cough [Unknown]
  - Hyperhidrosis [Unknown]
  - Oropharyngeal pain [Unknown]
  - Somnolence [Unknown]
  - Fatigue [Unknown]
  - Vision blurred [Unknown]

NARRATIVE: CASE EVENT DATE: 20250110
